FAERS Safety Report 5413669-X (Version None)
Quarter: 2007Q3

REPORT INFORMATION
  Report Type: 
  Country: None (occurrence: None)
  Receive Date: 20070814
  Receipt Date: 20070806
  Transmission Date: 20080115
  Serious: Yes (Other)
  Sender: FDA-Public Use
  Company Number: GB-ASTRAZENECA-2007GB01273

PATIENT
  Age: 72 Year
  Sex: Female
  Weight: 64.2 kg

DRUGS (7)
  1. ARIMIDEX [Suspect]
     Indication: BREAST CANCER
     Route: 048
     Dates: start: 20070530, end: 20070613
  2. ERYTHROMYCIN [Concomitant]
     Indication: WOUND INFECTION
     Dates: start: 20070530
  3. LIVIAL [Concomitant]
  4. LEVOTHYROXINE SODIUM [Concomitant]
  5. AMITRIPTYLINE HCL [Concomitant]
  6. BENDROFLUMETHIAZIDE [Concomitant]
  7. LACRI-LUBE EYE OINTMENT [Concomitant]
     Route: 047

REACTIONS (4)
  - ERYTHEMA MULTIFORME [None]
  - RASH [None]
  - STEVENS-JOHNSON SYNDROME [None]
  - WOUND INFECTION [None]
